FAERS Safety Report 18707248 (Version 2)
Quarter: 2023Q2

REPORT INFORMATION
  Report Type: Report from Study
  Country: CO (occurrence: CO)
  Receive Date: 20210106
  Receipt Date: 20230612
  Transmission Date: 20230721
  Serious: Yes (Other)
  Sender: FDA-Public Use
  Company Number: CO-JNJFOC-20210104938

PATIENT
  Age: 8 Decade
  Sex: Female

DRUGS (1)
  1. STELARA [Suspect]
     Active Substance: USTEKINUMAB
     Indication: Psoriasis
     Route: 058
     Dates: start: 20110823

REACTIONS (2)
  - Foot fracture [Recovering/Resolving]
  - COVID-19 [Unknown]

NARRATIVE: CASE EVENT DATE: 20200101
